FAERS Safety Report 17555376 (Version 1)
Quarter: 2020Q1

REPORT INFORMATION
  Report Type: Spontaneous
  Country: US (occurrence: US)
  Receive Date: 20200318
  Receipt Date: 20200318
  Transmission Date: 20200409
  Serious: Yes (Hospitalization)
  Sender: FDA-Public Use
  Company Number: US-VERTEX PHARMACEUTICALS-2020-005651

PATIENT
  Sex: Female

DRUGS (11)
  1. PULMOZYME [Concomitant]
     Active Substance: DORNASE ALFA
  2. LANTUS [Concomitant]
     Active Substance: INSULIN GLARGINE
  3. ORKAMBI [Suspect]
     Active Substance: IVACAFTOR\LUMACAFTOR
     Indication: CYSTIC FIBROSIS
     Dosage: 2 TABLETS(LUMACAFTOR/IVACAFTOR), BID
     Route: 048
     Dates: start: 201704
  4. PREVACID [Concomitant]
     Active Substance: LANSOPRAZOLE
  5. CREON [Concomitant]
     Active Substance: PANCRELIPASE AMYLASE\PANCRELIPASE LIPASE\PANCRELIPASE PROTEASE
  6. CEFDINIR. [Concomitant]
     Active Substance: CEFDINIR
  7. FLOVENT [Concomitant]
     Active Substance: FLUTICASONE PROPIONATE
  8. TOBRAMYCIN. [Concomitant]
     Active Substance: TOBRAMYCIN
  9. SULFAMETHOXAZOLE;TRIMETHOPRIM [Concomitant]
     Active Substance: SULFAMETHOXAZOLE\TRIMETHOPRIM
  10. ALBUTEROL [SALBUTAMOL] [Concomitant]
     Active Substance: ALBUTEROL
  11. INSULIN [Concomitant]
     Active Substance: INSULIN NOS

REACTIONS (1)
  - Hospitalisation [Unknown]
